FAERS Safety Report 16802270 (Version 1)
Quarter: 2019Q3

REPORT INFORMATION
  Report Type: Spontaneous
  Country: DE (occurrence: DE)
  Receive Date: 20190912
  Receipt Date: 20190912
  Transmission Date: 20191005
  Serious: Yes (Other)
  Sender: FDA-Public Use
  Company Number: PHHY2019DE208450

PATIENT
  Age: 82 Year
  Sex: Female
  Weight: 81 kg

DRUGS (2)
  1. CARBOPLATIN. [Suspect]
     Active Substance: CARBOPLATIN
     Indication: OVARIAN CANCER
     Dosage: 300 MG, QD (DAILY DOSE 300MG IN 500 ML GLUCOSE)
     Route: 042
  2. GEMCITABINE. [Suspect]
     Active Substance: GEMCITABINE
     Indication: OVARIAN CANCER
     Dosage: 1340 MG, QD (DAILY DOSE 1340MG IN 250 ML NACL)
     Route: 042

REACTIONS (7)
  - Rash [Recovered/Resolved]
  - Back pain [Recovered/Resolved]
  - Angina pectoris [Recovered/Resolved]
  - Cyanosis [Recovered/Resolved]
  - Blood pressure decreased [Recovered/Resolved]
  - Dyspnoea [Recovered/Resolved]
  - Pruritus [Recovered/Resolved]

NARRATIVE: CASE EVENT DATE: 20190819
